FAERS Safety Report 11432389 (Version 3)
Quarter: 2015Q3

REPORT INFORMATION
  Report Type: Report from Study
  Country: DE (occurrence: DE)
  Receive Date: 20150828
  Receipt Date: 20150930
  Transmission Date: 20151125
  Serious: Yes (Death, Other)
  Sender: FDA-Public Use
  Company Number: DE-GILEAD-2015-0169384AA

PATIENT
  Age: 55 Year
  Sex: Female
  Weight: 56 kg

DRUGS (7)
  1. SOFOSBUVIR [Suspect]
     Active Substance: SOFOSBUVIR
     Indication: CHRONIC HEPATITIS C
     Dosage: 400 MG, QD
     Route: 048
     Dates: start: 20140918, end: 20141211
  2. VITAMIN D [Concomitant]
     Active Substance: CHOLECALCIFEROL
     Dosage: 2500 IU, UNK
     Route: 065
  3. PROTELOS [Concomitant]
     Active Substance: STRONTIUM RANELATE
     Dosage: UNK
     Route: 065
  4. DACLATASVIR. [Suspect]
     Active Substance: DACLATASVIR
     Indication: CHRONIC HEPATITIS C
     Dosage: 60 MG, QD
     Route: 048
     Dates: start: 20140918, end: 20141211
  5. MAGNESIUM [Concomitant]
     Active Substance: MAGNESIUM
     Dosage: UNK
     Route: 065
  6. VOTUM [Concomitant]
     Active Substance: OLMESARTAN MEDOXOMIL
     Dosage: 10 MG, UNK
     Route: 065
  7. KALINOR                            /00031402/ [Concomitant]
     Active Substance: POTASSIUM CITRATE
     Dosage: UNK
     Route: 065

REACTIONS (1)
  - Death [Fatal]
